FAERS Safety Report 18393102 (Version 3)
Quarter: 2020Q4

REPORT INFORMATION
  Report Type: Spontaneous
  Country: US (occurrence: US)
  Receive Date: 20201016
  Receipt Date: 20201120
  Transmission Date: 20210114
  Serious: No
  Sender: FDA-Public Use
  Company Number: US-ASTRAZENECA-2020SF33553

PATIENT
  Age: 1043 Month
  Sex: Female
  Weight: 51.3 kg

DRUGS (1)
  1. RHINOCORT ALLERGY [Suspect]
     Active Substance: BUDESONIDE
     Indication: NASAL CONGESTION
     Dosage: 2 SQUIRTS SQUIRTS NOSTRIL ONCE DAILY LAST ADMIN DATE: 06-OCT-2020
     Route: 045
     Dates: start: 20201003, end: 202010

REACTIONS (3)
  - Somnolence [Not Recovered/Not Resolved]
  - Dizziness [Recovering/Resolving]
  - Fatigue [Not Recovered/Not Resolved]

NARRATIVE: CASE EVENT DATE: 202010
